FAERS Safety Report 15633509 (Version 4)
Quarter: 2019Q3

REPORT INFORMATION
  Report Type: Spontaneous
  Country: US (occurrence: US)
  Receive Date: 20181119
  Receipt Date: 20190702
  Transmission Date: 20191004
  Serious: Yes (Other)
  Sender: FDA-Public Use
  Company Number: US-SA-2018SA314010

PATIENT
  Age: 51 Year
  Sex: Female
  Weight: 54.43 kg

DRUGS (10)
  1. PARAPLATIN [Concomitant]
     Active Substance: CARBOPLATIN
     Dosage: UNK
  2. GABAPENTIN. [Concomitant]
     Active Substance: GABAPENTIN
     Dosage: UNK
     Dates: start: 201208
  3. CARBOPLATIN. [Concomitant]
     Active Substance: CARBOPLATIN
     Dosage: 10 MG
  4. TAMOXIFEN [Concomitant]
     Active Substance: TAMOXIFEN
     Indication: PROPHYLAXIS
     Dosage: UNK
     Dates: start: 201402, end: 20160106
  5. DOCETAXEL. [Suspect]
     Active Substance: DOCETAXEL
     Dosage: 95 UNK, UNK (120 MGS (09/19/13 TO 12/04/13); 95MG (12/26/13 TO 01/29/13), 3-4 WEEKS)
     Route: 065
     Dates: start: 20140129, end: 20140129
  6. TRASTUZUMAB. [Concomitant]
     Active Substance: TRASTUZUMAB
  7. DOCETAXEL. [Suspect]
     Active Substance: DOCETAXEL
     Indication: BREAST CANCER FEMALE
     Dosage: 120 MG, UNK (120 MGS (09/19/13 TO 12/04/13); 95MG (12/26/13 TO 01/29/13), 3-4 WEEKS)
     Route: 065
     Dates: start: 20130919, end: 20130919
  8. ALPRAZOLAM. [Concomitant]
     Active Substance: ALPRAZOLAM
     Dosage: UNK
     Dates: start: 201208
  9. TYLENOL [Concomitant]
     Active Substance: ACETAMINOPHEN
     Dosage: UNK
     Dates: start: 2008
  10. ANASTROZOLE. [Concomitant]
     Active Substance: ANASTROZOLE
     Dosage: UNK
     Dates: start: 201208

REACTIONS (2)
  - Alopecia [Recovering/Resolving]
  - Psychological trauma [Unknown]

NARRATIVE: CASE EVENT DATE: 20140310
